FAERS Safety Report 14867806 (Version 1)
Quarter: 2018Q2

REPORT INFORMATION
  Report Type: Spontaneous
  Country: JP (occurrence: JP)
  Receive Date: 20180509
  Receipt Date: 20180509
  Transmission Date: 20180711
  Serious: Yes (Other)
  Sender: FDA-Public Use
  Company Number: JP-UCBSA-2018019349

PATIENT
  Age: 43 Year
  Sex: Male

DRUGS (1)
  1. E KEPPRA [Suspect]
     Active Substance: LEVETIRACETAM
     Indication: EPILEPSY
     Dosage: 10 MG/KG, 2X/DAY (BID)
     Route: 048

REACTIONS (3)
  - Prescribed underdose [Unknown]
  - Intentional self-injury [Unknown]
  - Agitation [Unknown]
